FAERS Safety Report 11719455 (Version 1)
Quarter: 2015Q4

REPORT INFORMATION
  Report Type: Spontaneous
  Country: US (occurrence: None)
  Receive Date: 20151109
  Receipt Date: 20151109
  Transmission Date: 20160304
  Serious: Yes (Hospitalization)
  Sender: FDA-Public Use
  Company Number: None

PATIENT
  Age: 46 Year
  Sex: Male
  Weight: 97.52 kg

DRUGS (1)
  1. INVOKANA [Suspect]
     Active Substance: CANAGLIFLOZIN
     Indication: TYPE 2 DIABETES MELLITUS
     Dosage: 1/DAY
     Route: 048
     Dates: start: 20150421, end: 20150423

REACTIONS (6)
  - Diabetic ketoacidosis [None]
  - Cardiac arrest [None]
  - Neuropathy peripheral [None]
  - Coma [None]
  - Abasia [None]
  - Renal failure [None]

NARRATIVE: CASE EVENT DATE: 20150424
